FAERS Safety Report 25105917 (Version 1)
Quarter: 2025Q1

REPORT INFORMATION
  Report Type: Spontaneous
  Country: BR (occurrence: BR)
  Receive Date: 20250321
  Receipt Date: 20250321
  Transmission Date: 20250408
  Serious: Yes (Other)
  Sender: NOVARTIS
  Company Number: BR-002147023-NVSC2025BR047268

PATIENT
  Sex: Male

DRUGS (1)
  1. AMLODIPINE\VALSARTAN [Suspect]
     Active Substance: AMLODIPINE\VALSARTAN
     Indication: Blood pressure management
     Route: 065

REACTIONS (5)
  - Dementia Alzheimer^s type [Not Recovered/Not Resolved]
  - Anaemia [Not Recovered/Not Resolved]
  - Memory impairment [Not Recovered/Not Resolved]
  - Gait inability [Not Recovered/Not Resolved]
  - Asthenia [Not Recovered/Not Resolved]
